FAERS Safety Report 18330352 (Version 1)
Quarter: 2020Q3

REPORT INFORMATION
  Report Type: Spontaneous
  Country: US (occurrence: US)
  Receive Date: 20200930
  Receipt Date: 20200930
  Transmission Date: 20201103
  Serious: No
  Sender: FDA-Public Use
  Company Number: None

PATIENT
  Age: 64 Year
  Sex: Male
  Weight: 85.5 kg

DRUGS (1)
  1. LISTERINE TOTAL CARE ZERO ALCOHOL ANTICAVITY FRESH MINT [Suspect]
     Active Substance: SODIUM FLUORIDE
     Indication: DYSGEUSIA
     Dosage: ?          OTHER ROUTE:ORAL RINSE?

REACTIONS (3)
  - Burning sensation [None]
  - Ageusia [None]
  - Dysaesthesia [None]

NARRATIVE: CASE EVENT DATE: 20200915
